FAERS Safety Report 9274311 (Version 1)
Quarter: 2013Q2

REPORT INFORMATION
  Report Type: Spontaneous
  Country: US (occurrence: US)
  Receive Date: 20130506
  Receipt Date: 20130506
  Transmission Date: 20140414
  Serious: Yes (Hospitalization)
  Sender: FDA-Public Use
  Company Number: US-ELI_LILLY_AND_COMPANY-US201305000427

PATIENT
  Age: 70 Year
  Sex: Female

DRUGS (1)
  1. HUMULIN REGULAR [Suspect]
     Route: 058

REACTIONS (4)
  - Fall [Unknown]
  - Blood glucose increased [Not Recovered/Not Resolved]
  - Blood glucose decreased [Unknown]
  - Wrong technique in drug usage process [Not Recovered/Not Resolved]
